FAERS Safety Report 7374749-5 (Version None)
Quarter: 2011Q1

REPORT INFORMATION
  Report Type: 
  Country: None (occurrence: None)
  Receive Date: 20110325
  Receipt Date: 20101007
  Transmission Date: 20110831
  Serious: No
  Sender: FDA-Public Use
  Company Number: US-MYLANLABS-2010S1018633

PATIENT
  Age: 63 Year
  Sex: Female

DRUGS (5)
  1. PRISTIQ [Concomitant]
  2. OXYCODONE [Concomitant]
  3. XANAX [Concomitant]
  4. GEODON [Concomitant]
  5. FENTANYL-100 [Suspect]
     Indication: PAIN
     Dosage: CHANGED Q72H
     Route: 062

REACTIONS (3)
  - DRUG WITHDRAWAL SYNDROME [None]
  - DRUG EFFECT DECREASED [None]
  - PAIN [None]
